FAERS Safety Report 11157688 (Version 1)
Quarter: 2015Q2

REPORT INFORMATION
  Report Type: Spontaneous
  Country: US (occurrence: None)
  Receive Date: 20150602
  Receipt Date: 20150602
  Transmission Date: 20150821
  Serious: Yes (Death)
  Sender: FDA-Public Use
  Company Number: None

PATIENT
  Age: 17 Year
  Sex: Female
  Weight: 112.9 kg

DRUGS (4)
  1. CYTARABINE. [Suspect]
     Active Substance: CYTARABINE
     Indication: SUDDEN DEATH
     Dates: start: 20090409
  2. HYDROCORTISONE. [Suspect]
     Active Substance: HYDROCORTISONE
     Dates: start: 20090430
  3. METHOTREXATE [Suspect]
     Active Substance: METHOTREXATE
     Dates: start: 20090430
  4. PEG/L-ASPARAGINASE [Suspect]
     Active Substance: PEGASPARGASE
     Dates: start: 20090422

REACTIONS (2)
  - Febrile neutropenia [None]
  - Abdominal pain [None]

NARRATIVE: CASE EVENT DATE: 20090505
